FAERS Safety Report 4372532-6 (Version None)
Quarter: 2004Q2

REPORT INFORMATION
  Report Type: 
  Country: None (occurrence: None)
  Receive Date: 20040608
  Receipt Date: 20040601
  Transmission Date: 20050107
  Serious: Yes (Death, Life-Threatening)
  Sender: FDA-Public Use
  Company Number: PHHO2004JP07912

PATIENT
  Age: 55 Year
  Sex: Female

DRUGS (4)
  1. NEORAL [Suspect]
     Indication: LUNG TRANSPLANT
     Dosage: NOT REPORTED
     Route: 048
     Dates: start: 20040501, end: 20040501
  2. IMURAN [Suspect]
     Indication: LUNG TRANSPLANT
     Dosage: NOT REPORTED
     Route: 048
     Dates: start: 20040501, end: 20040501
  3. PREDONINE [Suspect]
     Indication: LUNG TRANSPLANT
     Dosage: NOT REPORTED
     Route: 048
     Dates: start: 20040501, end: 20040501
  4. ORTHOCLONE OKT3 [Suspect]
     Indication: LUNG TRANSPLANT
     Dosage: NOT REPORTED
     Route: 065

REACTIONS (3)
  - LUNG TRANSPLANT REJECTION [None]
  - PULMONARY OEDEMA [None]
  - RESPIRATORY FAILURE [None]
